FAERS Safety Report 25660931 (Version 1)
Quarter: 2025Q3

REPORT INFORMATION
  Report Type: Spontaneous
  Country: CN (occurrence: CN)
  Receive Date: 20250808
  Receipt Date: 20250808
  Transmission Date: 20251021
  Serious: Yes (Other)
  Sender: PFIZER
  Company Number: CN-PFIZER INC-PV202500095679

PATIENT
  Age: 79 Year
  Sex: Male

DRUGS (1)
  1. MEROPENEM [Suspect]
     Active Substance: MEROPENEM
     Indication: Infection
     Dosage: 2 G, 3X/DAY
     Route: 041
     Dates: start: 20250628, end: 20250728

REACTIONS (3)
  - Neutrophil count decreased [Not Recovered/Not Resolved]
  - Monocyte count increased [Not Recovered/Not Resolved]
  - Eosinophil count increased [Not Recovered/Not Resolved]

NARRATIVE: CASE EVENT DATE: 20250727
